FAERS Safety Report 7878627-4 (Version None)
Quarter: 2011Q4

REPORT INFORMATION
  Report Type: 
  Country: None (occurrence: None)
  Receive Date: 20111028
  Receipt Date: 20111019
  Transmission Date: 20120403
  Serious: Yes (Hospitalization)
  Sender: FDA-Public Use
  Company Number: 1000024810

PATIENT
  Age: 37 Year
  Sex: Female

DRUGS (4)
  1. LEXAPRO [Suspect]
     Indication: SEASONAL AFFECTIVE DISORDER
     Dosage: 20 MG (20 MG, 1 IN 1 D), ORAL
     Route: 048
     Dates: start: 20110101
  2. IRON (IRON) (IRON) [Concomitant]
  3. CLONAZEPAM [Concomitant]
  4. ARMOUR THYROID ( THYROID) (THYROID) [Concomitant]

REACTIONS (6)
  - ENCEPHALOPATHY [None]
  - OFF LABEL USE [None]
  - MENTAL STATUS CHANGES [None]
  - DRUG SCREEN FALSE POSITIVE [None]
  - DYSARTHRIA [None]
  - IMPAIRED DRIVING ABILITY [None]
